FAERS Safety Report 24804056 (Version 1)
Quarter: 2025Q1

REPORT INFORMATION
  Report Type: Spontaneous
  Country: US (occurrence: None)
  Receive Date: 20250102
  Receipt Date: 20250102
  Transmission Date: 20250408
  Serious: Yes (Other)
  Sender: FDA-CTU
  Company Number: None

PATIENT
  Age: 43 Year
  Sex: Male

DRUGS (1)
  1. BOTOX [Suspect]
     Active Substance: ONABOTULINUMTOXINA
     Indication: Migraine
     Route: 041

REACTIONS (6)
  - Injection site reaction [None]
  - Migraine [None]
  - Eyelid ptosis [None]
  - Neck pain [None]
  - Facial pain [None]
  - General physical condition abnormal [None]
